FAERS Safety Report 24337391 (Version 6)
Quarter: 2025Q2

REPORT INFORMATION
  Report Type: Spontaneous
  Country: US (occurrence: US)
  Receive Date: 20240919
  Receipt Date: 20250602
  Transmission Date: 20250717
  Serious: Yes (Other)
  Sender: BRISTOL-MYERS SQUIBB COMPANY
  Company Number: US-BRISTOL-MYERS SQUIBB COMPANY-2024-148805

PATIENT
  Age: 74 Year
  Sex: Female

DRUGS (2)
  1. REVLIMID [Suspect]
     Active Substance: LENALIDOMIDE
     Indication: Plasma cell myeloma in remission
     Route: 048
  2. REVLIMID [Suspect]
     Active Substance: LENALIDOMIDE
     Dosage: DAILY FOR 21 DAYS ON 7 DAYS OFF
     Route: 048

REACTIONS (10)
  - Diarrhoea [Recovered/Resolved with Sequelae]
  - Neuropathy peripheral [Unknown]
  - Gastrointestinal disorder [Unknown]
  - Eye disorder [Recovered/Resolved]
  - Abdominal discomfort [Recovered/Resolved]
  - Chest pain [Recovered/Resolved]
  - Dry eye [Unknown]
  - Meibomian gland dysfunction [Unknown]
  - Cataract [Unknown]
  - Constipation [Unknown]
